FAERS Safety Report 4310005-7 (Version None)
Quarter: 2004Q1

REPORT INFORMATION
  Report Type: 
  Country: None (occurrence: None)
  Receive Date: 20040301
  Receipt Date: 20031106
  Transmission Date: 20041129
  Serious: No
  Sender: FDA-Public Use
  Company Number: WAES 0310USA02046

PATIENT
  Age: 75 Year
  Sex: Male
  Weight: 85.2762 kg

DRUGS (1)
  1. ZETIA [Suspect]
     Indication: BLOOD CHOLESTEROL INCREASED
     Dosage: 10 MG/DAILY/PO
     Route: 048
     Dates: start: 20030915

REACTIONS (4)
  - ABDOMINAL PAIN UPPER [None]
  - DUODENAL ULCER [None]
  - GASTRIC ULCER [None]
  - NECROSIS [None]
